FAERS Safety Report 21050873 (Version 3)
Quarter: 2022Q3

REPORT INFORMATION
  Report Type: Report from Study
  Country: CA (occurrence: CA)
  Receive Date: 20220707
  Receipt Date: 20220804
  Transmission Date: 20221026
  Serious: Yes (Other)
  Sender: FDA-Public Use
  Company Number: CA-JNJFOC-20220707433

PATIENT
  Age: 11 Year
  Sex: Male
  Weight: 49 kg

DRUGS (1)
  1. REMICADE [Suspect]
     Active Substance: INFLIXIMAB
     Indication: Colitis ulcerative
     Dosage: PATIENT RECEIVED LAST INFUSION ON 06-JUN-2022. PATIENT RECEIVED LAST INFUSION ON 04-JUL-2022.
     Route: 042

REACTIONS (6)
  - Haematochezia [Recovered/Resolved]
  - Gastrointestinal inflammation [Unknown]
  - Anxiety [Unknown]
  - Fear of injection [Unknown]
  - Abdominal pain [Recovering/Resolving]
  - Diarrhoea [Recovered/Resolved]

NARRATIVE: CASE EVENT DATE: 20220702
